FAERS Safety Report 21471022 (Version 1)
Quarter: 2022Q4

REPORT INFORMATION
  Report Type: Spontaneous
  Country: US (occurrence: None)
  Receive Date: 20221017
  Receipt Date: 20221017
  Transmission Date: 20230112
  Serious: Yes (Other)
  Sender: FDA-Public Use
  Company Number: None

PATIENT
  Age: 63 Year
  Sex: Female
  Weight: 76.68 kg

DRUGS (1)
  1. PAXLOVID [Suspect]
     Active Substance: NIRMATRELVIR\RITONAVIR
     Indication: COVID-19
     Dosage: FREQUENCY : TWICE A DAY;?
     Route: 048
     Dates: start: 20221004, end: 20221009

REACTIONS (5)
  - Rhinorrhoea [None]
  - Feeling abnormal [None]
  - Cough [None]
  - SARS-CoV-2 test positive [None]
  - Pyrexia [None]

NARRATIVE: CASE EVENT DATE: 20221015
